FAERS Safety Report 12466443 (Version 1)
Quarter: 2016Q2

REPORT INFORMATION
  Report Type: Report from Study
  Country: BE (occurrence: BE)
  Receive Date: 20160615
  Receipt Date: 20160615
  Transmission Date: 20160815
  Serious: Yes (Death, Hospitalization, Other)
  Sender: FDA-Public Use
  Company Number: BE-AMGEN-BELCT2016017700

PATIENT
  Age: 65 Year
  Sex: Female
  Weight: 56 kg

DRUGS (3)
  1. DABRAFENIB [Suspect]
     Active Substance: DABRAFENIB
     Indication: COLORECTAL CANCER
     Dosage: 150 MG, BID
     Route: 048
     Dates: start: 20150729, end: 20150825
  2. TRAMETINIB [Suspect]
     Active Substance: TRAMETINIB
     Indication: COLORECTAL CANCER
     Dosage: 2 MG, QD
     Route: 048
     Dates: start: 20150729, end: 20150825
  3. PANITUMUMAB [Suspect]
     Active Substance: PANITUMUMAB
     Indication: COLORECTAL CANCER
     Dosage: UNK, EVERY 14 DAYS CYCLIC
     Route: 042
     Dates: start: 20150729

REACTIONS (2)
  - Staphylococcal sepsis [Not Recovered/Not Resolved]
  - Malignant neoplasm progression [Fatal]

NARRATIVE: CASE EVENT DATE: 20150831
